FAERS Safety Report 9881834 (Version 2)
Quarter: 2014Q2

REPORT INFORMATION
  Report Type: Spontaneous
  Country: BR (occurrence: BR)
  Receive Date: 20140207
  Receipt Date: 20140417
  Transmission Date: 20141212
  Serious: Yes (Other)
  Sender: FDA-Public Use
  Company Number: BR-PFIZER INC-2014034064

PATIENT
  Age: 66 Year
  Sex: Male
  Weight: 87 kg

DRUGS (12)
  1. ZOLOFT [Suspect]
     Dosage: 4 TABLETS OF 50MG (200 MG), ONCE DAILY
     Dates: start: 201108
  2. VALSARTAN [Suspect]
     Dosage: UNK
  3. ROSUVASTATIN CALCIUM [Suspect]
     Dosage: UNK
  4. CYMBALTA [Suspect]
     Dosage: UNK
  5. DONAREN [Suspect]
     Dosage: UNK
  6. VALIUM [Suspect]
     Dosage: UNK
  7. GLIFAGE [Suspect]
     Dosage: UNK
  8. PURAN T4 [Suspect]
     Dosage: UNK
  9. DIAMICRON [Suspect]
     Dosage: UNK
  10. VALDOXAN [Suspect]
     Dosage: UNK
  11. MACRODANTINA [Suspect]
     Dosage: UNK
  12. BEZAFIBRATE [Suspect]
     Dosage: UNK

REACTIONS (3)
  - Prostate infection [Unknown]
  - Urinary tract infection [Unknown]
  - Rash macular [Not Recovered/Not Resolved]
